FAERS Safety Report 12353488 (Version 1)
Quarter: 2016Q2

REPORT INFORMATION
  Report Type: Report from Study
  Country: RO (occurrence: RO)
  Receive Date: 20160511
  Receipt Date: 20160511
  Transmission Date: 20160815
  Serious: Yes (Hospitalization)
  Sender: FDA-Public Use
  Company Number: PHHO2013RO008752

PATIENT
  Age: 61 Year
  Sex: Male
  Weight: 80 kg

DRUGS (17)
  1. CANDESARTAN HEXAL [Suspect]
     Active Substance: CANDESARTAN CILEXETIL
     Indication: HYPERTENSION
     Dosage: 16 MG, QD
     Route: 048
     Dates: start: 20090715, end: 201111
  2. ACENOCOUMAROL [Concomitant]
     Active Substance: ACENOCOUMAROL
     Dosage: 2 MG, QD
     Route: 048
     Dates: start: 20130128, end: 20130522
  3. ALISKIREN [Suspect]
     Active Substance: ALISKIREN
     Indication: CARDIAC FAILURE
     Dosage: 300 MG, UNK
     Route: 048
     Dates: start: 20120808
  4. TIANEPTINE [Concomitant]
     Active Substance: TIANEPTINE
     Indication: CEREBROVASCULAR ACCIDENT
     Dosage: 12.5 MG, BID
     Route: 048
     Dates: end: 20130122
  5. SPIRONOLACTONE. [Concomitant]
     Active Substance: SPIRONOLACTONE
     Indication: CARDIAC FAILURE ACUTE
     Dosage: 50 MG, QD
     Route: 048
     Dates: start: 20130123, end: 20130127
  6. ISOSORBID DINITRATE [Concomitant]
     Indication: CARDIOVASCULAR EVENT PROPHYLAXIS
     Dosage: 20 MG, BID
     Dates: start: 20130128, end: 201305
  7. LISINOPRIL. [Concomitant]
     Active Substance: LISINOPRIL
     Indication: CARDIAC FAILURE CHRONIC
     Dosage: 10 MG, QD
     Route: 048
     Dates: start: 201111, end: 20120621
  8. AMINOPHYLLINE. [Concomitant]
     Active Substance: AMINOPHYLLINE
     Indication: CARDIAC FAILURE ACUTE
     Dosage: 100 MG, QD
     Dates: start: 20130123, end: 20130627
  9. DIUREX [Concomitant]
     Indication: CARDIAC FAILURE CHRONIC
     Dosage: 20/50 MG QD
     Route: 048
     Dates: start: 20130128, end: 201305
  10. CARVEDILOL. [Concomitant]
     Active Substance: CARVEDILOL
     Indication: CARDIAC FAILURE CHRONIC
     Dosage: 3.125 MG, QD
     Route: 048
     Dates: start: 20110311, end: 20120616
  11. CARVEDILOL. [Concomitant]
     Active Substance: CARVEDILOL
     Dosage: 6.25 MG, QD
     Route: 048
     Dates: start: 20120616, end: 20130122
  12. ACETYLSALICYLIC ACID [Concomitant]
     Active Substance: ASPIRIN
     Indication: CARDIAC FAILURE ACUTE
     Dosage: 100 MG, QD
     Route: 048
     Dates: start: 20130123, end: 201305
  13. FUROSEMIDE. [Concomitant]
     Active Substance: FUROSEMIDE
     Indication: CARDIAC FAILURE ACUTE
     Dosage: 20 MG, QD
     Route: 042
     Dates: start: 20130123, end: 20130127
  14. AMLODIPIN/ATORVASTATIN [Concomitant]
     Indication: HYPERTENSION
     Dosage: 5/DAY QD
     Route: 048
     Dates: start: 20120622, end: 20130131
  15. ENALAPRIL [Suspect]
     Active Substance: ENALAPRIL
     Indication: CARDIAC FAILURE
     Dosage: 10 MG, BID
     Route: 048
     Dates: start: 20120808
  16. ACENOCOUMAROL [Concomitant]
     Active Substance: ACENOCOUMAROL
     Indication: ATRIAL FIBRILLATION
     Dosage: 2 MG, QD
     Route: 048
     Dates: start: 20110314, end: 20130622
  17. PENTOXIFILIN [Concomitant]
     Indication: PROPHYLAXIS
     Dosage: 400 MG, TID
     Route: 048
     Dates: start: 20120622, end: 20130122

REACTIONS (5)
  - Chronic kidney disease [Not Recovered/Not Resolved]
  - Lichen sclerosus [Not Recovered/Not Resolved]
  - Epistaxis [Recovered/Resolved]
  - Secondary hypertension [Not Recovered/Not Resolved]
  - Anaemia [Not Recovered/Not Resolved]

NARRATIVE: CASE EVENT DATE: 20130522
